FAERS Safety Report 11385449 (Version 1)
Quarter: 2015Q3

REPORT INFORMATION
  Report Type: Report from Study
  Country: US (occurrence: US)
  Receive Date: 20150815
  Receipt Date: 20150815
  Transmission Date: 20151125
  Serious: Yes (Hospitalization, Other)
  Sender: FDA-Public Use
  Company Number: US-ABBVIE-15K-163-1440881-00

PATIENT
  Age: 54 Year
  Sex: Female
  Weight: 68.1 kg

DRUGS (2)
  1. HUMIRA [Suspect]
     Active Substance: ADALIMUMAB
     Indication: CROHN^S DISEASE
     Route: 058
     Dates: start: 201501, end: 20150526
  2. PREDNISONE. [Concomitant]
     Active Substance: PREDNISONE
     Indication: CROHN^S DISEASE

REACTIONS (8)
  - Gastrointestinal wall thickening [Recovered/Resolved]
  - Large intestinal obstruction [Recovered/Resolved]
  - Red blood cell sedimentation rate increased [Unknown]
  - Small intestinal stenosis [Recovered/Resolved]
  - Fatigue [Recovered/Resolved]
  - Cholelithiasis [Unknown]
  - Small intestinal obstruction [Recovered/Resolved]
  - Gastrointestinal wall thickening [Unknown]

NARRATIVE: CASE EVENT DATE: 201503
